FAERS Safety Report 25376682 (Version 1)
Quarter: 2025Q2

REPORT INFORMATION
  Report Type: Spontaneous
  Country: JP (occurrence: JP)
  Receive Date: 20250530
  Receipt Date: 20250530
  Transmission Date: 20250716
  Serious: Yes (Other)
  Sender: UCB
  Company Number: JP-UCBJ-CD202506935UCBPHAPROD

PATIENT
  Age: 15 Year
  Sex: Male

DRUGS (2)
  1. FINTEPLA [Suspect]
     Active Substance: FENFLURAMINE
     Indication: Lennox-Gastaut syndrome
     Route: 048
     Dates: start: 20240719
  2. PHENYTOIN [Suspect]
     Active Substance: PHENYTOIN
     Indication: Product used for unknown indication

REACTIONS (4)
  - Epilepsy [Unknown]
  - Nasopharyngitis [Unknown]
  - Somnolence [Unknown]
  - Discharge [Unknown]

NARRATIVE: CASE EVENT DATE: 20250323
